FAERS Safety Report 4802961-5 (Version None)
Quarter: 2005Q4

REPORT INFORMATION
  Report Type: 
  Country: None (occurrence: None)
  Receive Date: 20051017
  Receipt Date: 20051017
  Transmission Date: 20060501
  Serious: Yes (Hospitalization, Other)
  Sender: FDA-Public Use
  Company Number: None

PATIENT
  Sex: Male
  Weight: 73 kg

DRUGS (4)
  1. ZYLOPRIM [Suspect]
     Indication: BURKITT'S LYMPHOMA
     Dosage: SEE IMAGE
     Route: 048
     Dates: start: 20050816
  2. ZYLOPRIM [Suspect]
     Indication: LEUKAEMIA
     Dosage: SEE IMAGE
     Route: 048
     Dates: start: 20050816
  3. CYCLOPHOSPHAMIDE [Suspect]
     Dosage: SEE IMAGE
     Route: 042
  4. PREDNISONE TAB [Suspect]
     Dosage: SEE IMAGE
     Route: 048

REACTIONS (3)
  - BLOOD CALCIUM DECREASED [None]
  - BLOOD POTASSIUM DECREASED [None]
  - PYREXIA [None]
